FAERS Safety Report 21240914 (Version 1)
Quarter: 2022Q3

REPORT INFORMATION
  Report Type: Spontaneous
  Country: US (occurrence: None)
  Receive Date: 20220822
  Receipt Date: 20220822
  Transmission Date: 20221026
  Serious: Yes (Disabling)
  Sender: FDA-Public Use
  Company Number: None

PATIENT
  Age: 84 Year
  Sex: Male
  Weight: 69.75 kg

DRUGS (4)
  1. LEUPROLIDE [Suspect]
     Active Substance: LEUPROLIDE
     Indication: Prostatic disorder
     Dosage: OTHER QUANTITY : 1 INJECTION(S);?
     Dates: start: 20220816
  2. Tolfemide [Concomitant]
  3. APIXABAN [Concomitant]
  4. FUROSEMIDE [Concomitant]
     Active Substance: FUROSEMIDE

REACTIONS (4)
  - Dizziness [None]
  - Nausea [None]
  - Abdominal discomfort [None]
  - Laziness [None]

NARRATIVE: CASE EVENT DATE: 20220820
